FAERS Safety Report 6241240-9 (Version None)
Quarter: 2009Q2

REPORT INFORMATION
  Report Type: 
  Country: None (occurrence: None)
  Receive Date: 20090619
  Receipt Date: 20090619
  Transmission Date: 20091009
  Serious: Yes (Hospitalization)
  Sender: FDA-Public Use
  Company Number: None

PATIENT
  Age: 66 Year
  Sex: Male

DRUGS (2)
  1. ROSUVASTATIN CALCIUM [Suspect]
     Dosage: ROSUVASTATIN 5 MG AT BEDTIME PO
     Route: 048
     Dates: start: 20080612, end: 20080612
  2. SIMVASTATIN [Suspect]
     Dosage: SIMVASTATIN 40 MG AT BEDTIME PO
     Route: 048
     Dates: start: 20080609, end: 20080609

REACTIONS (1)
  - ISCHAEMIC CEREBRAL INFARCTION [None]
